FAERS Safety Report 9473616 (Version 2)
Quarter: 2013Q3

REPORT INFORMATION
  Report Type: Spontaneous
  Country: US (occurrence: US)
  Receive Date: 20130823
  Receipt Date: 20130823
  Transmission Date: 20140515
  Serious: No
  Sender: FDA-Public Use
  Company Number: US-BRISTOL-MYERS SQUIBB COMPANY-16714255

PATIENT
  Age: 70 Year
  Sex: Female
  Weight: 54.42 kg

DRUGS (2)
  1. SPRYCEL [Suspect]
     Indication: CHRONIC MYELOID LEUKAEMIA
     Dates: start: 20120503, end: 20120625
  2. GLEEVEC [Suspect]

REACTIONS (2)
  - Furuncle [Unknown]
  - Headache [Recovered/Resolved]
